FAERS Safety Report 15840941 (Version 1)
Quarter: 2019Q1

REPORT INFORMATION
  Report Type: Spontaneous
  Country: US (occurrence: US)
  Receive Date: 20190118
  Receipt Date: 20190118
  Transmission Date: 20190417
  Serious: Yes (Hospitalization)
  Sender: FDA-Public Use
  Company Number: US-ORPHAN EUROPE-2061426

PATIENT
  Age: 5 Year
  Sex: Male

DRUGS (1)
  1. CARBAGLU [Suspect]
     Active Substance: CARGLUMIC ACID
     Indication: UREA CYCLE DISORDER
     Dates: start: 20181020

REACTIONS (3)
  - Nausea [Unknown]
  - Ammonia increased [Unknown]
  - Vomiting [Unknown]

NARRATIVE: CASE EVENT DATE: 20181223
